FAERS Safety Report 21239899 (Version 2)
Quarter: 2022Q4

REPORT INFORMATION
  Report Type: Spontaneous
  Country: US (occurrence: None)
  Receive Date: 20220822
  Receipt Date: 20221011
  Transmission Date: 20230112
  Serious: No
  Sender: FDA-Public Use
  Company Number: 2022A290438

PATIENT
  Age: 19789 Day
  Sex: Female

DRUGS (1)
  1. TEZSPIRE [Suspect]
     Active Substance: TEZEPELUMAB-EKKO
     Indication: Asthma
     Route: 058
     Dates: start: 20220802, end: 20220802

REACTIONS (6)
  - Abdominal pain [Unknown]
  - Musculoskeletal chest pain [Unknown]
  - Headache [Unknown]
  - Chest discomfort [Unknown]
  - Oxygen saturation decreased [Unknown]
  - Rash [Unknown]

NARRATIVE: CASE EVENT DATE: 20220803
